FAERS Safety Report 7729543-X (Version None)
Quarter: 2011Q3

REPORT INFORMATION
  Report Type: 
  Country: None (occurrence: None)
  Receive Date: 20110906
  Receipt Date: 20110901
  Transmission Date: 20111222
  Serious: Yes (Other)
  Sender: FDA-Public Use
  Company Number: DE-SANOFI-AVENTIS-2011SA056392

PATIENT
  Sex: Male

DRUGS (10)
  1. OXALIPLATIN [Suspect]
     Route: 042
     Dates: start: 20110516, end: 20110822
  2. FLUOROURACIL [Suspect]
     Route: 040
     Dates: start: 20110516
  3. LEUCOVORIN CALCIUM [Suspect]
     Route: 042
     Dates: start: 20110516, end: 20110822
  4. RAMIPRIL [Concomitant]
  5. BEVACIZUMAB [Suspect]
     Route: 042
     Dates: start: 20110516
  6. METOPROLOL [Concomitant]
  7. SIMVASTATIN [Concomitant]
  8. ASPIRIN [Concomitant]
     Dates: start: 20110516
  9. FLUOROURACIL [Suspect]
     Route: 042
     Dates: start: 20110516
  10. MULTAQ [Concomitant]
     Dates: start: 20100501

REACTIONS (1)
  - LOSS OF CONSCIOUSNESS [None]
